FAERS Safety Report 7268242-8 (Version None)
Quarter: 2011Q1

REPORT INFORMATION
  Report Type: 
  Country: None (occurrence: None)
  Receive Date: 20110201
  Receipt Date: 20110127
  Transmission Date: 20110831
  Serious: Yes (Death, Hospitalization, Other)
  Sender: FDA-Public Use
  Company Number: PHFR2011GB00992

PATIENT
  Age: 74 Year
  Sex: Female
  Weight: 60 kg

DRUGS (4)
  1. DICLOFENAC [Suspect]
     Indication: SCIATICA
     Dosage: 50 MG, TID
     Route: 048
     Dates: start: 20100402, end: 20100414
  2. CO-DYDRAMOL [Concomitant]
     Indication: SCIATICA
  3. BENDROFLUMETHIAZIDE [Concomitant]
     Indication: HYPERTENSION
     Dosage: 2.5 MG, QD
     Route: 048
  4. ORAMORPH SR [Concomitant]
     Indication: SCIATICA

REACTIONS (11)
  - SYNCOPE [None]
  - CARDIAC AUTONOMIC NEUROPATHY [None]
  - CARDIOMYOPATHY [None]
  - BACK PAIN [None]
  - THERAPEUTIC RESPONSE DECREASED [None]
  - MYOCARDIAL ISCHAEMIA [None]
  - GASTRIC ULCER PERFORATION [None]
  - MULTI-ORGAN FAILURE [None]
  - PERITONITIS [None]
  - FALL [None]
  - HYPERTENSION [None]
